FAERS Safety Report 9907857 (Version 2)
Quarter: 2014Q1

REPORT INFORMATION
  Report Type: Spontaneous
  Country: US (occurrence: US)
  Receive Date: 20140219
  Receipt Date: 20140319
  Transmission Date: 20141002
  Serious: No
  Sender: FDA-Public Use
  Company Number: US-BIOGENIDEC-2014BI014233

PATIENT
  Age: 52 Year
  Sex: Female

DRUGS (13)
  1. TECFIDERA [Suspect]
     Indication: MULTIPLE SCLEROSIS
     Route: 048
  2. BLACK COHOSH [Concomitant]
  3. CRESTOR [Concomitant]
  4. FIBERCHOICE [Concomitant]
  5. GABAPENTIN [Concomitant]
  6. MELOXICAM [Concomitant]
  7. OMEPRAZOLE [Concomitant]
  8. OXYCONTIN [Concomitant]
  9. PROBIOTIC COMPLEX ACIDOPHILUSTRUBIOTICS [Concomitant]
  10. VESICARE [Concomitant]
  11. VITAMIN B-12 [Concomitant]
  12. VITAMIN D [Concomitant]
  13. VITAMIN E BLEND [Concomitant]

REACTIONS (6)
  - Melaena [Unknown]
  - Fatigue [Unknown]
  - Weight decreased [Unknown]
  - Nausea [Unknown]
  - Diarrhoea [Unknown]
  - Abdominal pain upper [Unknown]
